FAERS Safety Report 8743150 (Version 4)
Quarter: 2012Q4

REPORT INFORMATION
  Report Type: Report from Study
  Country: US (occurrence: US)
  Receive Date: 20120824
  Receipt Date: 20121008
  Transmission Date: 20130627
  Serious: Yes (Hospitalization, Other)
  Sender: FDA-Public Use
  Company Number: US-ABBOTT-12P-163-0969659-00

PATIENT
  Age: 28 Year
  Sex: Male
  Weight: 72.64 kg

DRUGS (7)
  1. HUMIRA [Suspect]
     Indication: CROHN^S DISEASE
     Route: 058
     Dates: start: 201010
  2. HUMIRA [Suspect]
     Route: 058
     Dates: start: 20120706
  3. HUMIRA [Suspect]
     Route: 058
     Dates: start: 20120830
  4. DEMEROL [Suspect]
     Indication: PRODUCT USED FOR UNKNOWN INDICATION
  5. KLONOPIN [Concomitant]
     Indication: ANXIETY
  6. SEROQUEL [Concomitant]
     Indication: DEPRESSION
  7. CELEXA [Concomitant]
     Indication: DEPRESSION

REACTIONS (9)
  - Arthropod bite [Recovered/Resolved]
  - Wound necrosis [Recovered/Resolved]
  - Staphylococcal infection [Unknown]
  - Erythema [Unknown]
  - Infusion site pain [Unknown]
  - Infusion site pruritus [Unknown]
  - Cough [Not Recovered/Not Resolved]
  - Sneezing [Not Recovered/Not Resolved]
  - Oropharyngeal pain [Not Recovered/Not Resolved]
